FAERS Safety Report 8070489-8 (Version None)
Quarter: 2012Q1

REPORT INFORMATION
  Report Type: 
  Country: None (occurrence: None)
  Receive Date: 20120125
  Receipt Date: 20120116
  Transmission Date: 20120608
  Serious: Yes (Hospitalization)
  Sender: FDA-Public Use
  Company Number: GB-ROCHE-1030827

PATIENT
  Sex: Female
  Weight: 70 kg

DRUGS (6)
  1. LEVOTHYROXINE SODIUM [Concomitant]
  2. ALENDRONATE SODIUM [Concomitant]
  3. METHOTREXATE [Concomitant]
  4. FOLIC ACID [Concomitant]
  5. MABTHERA [Suspect]
     Indication: RHEUMATOID ARTHRITIS
     Route: 042
     Dates: start: 20081111
  6. CALCEOS [Concomitant]

REACTIONS (7)
  - INFLAMMATION [None]
  - BRONCHOPLEURAL FISTULA [None]
  - PLEURAL INFECTION [None]
  - HYDROPNEUMOTHORAX [None]
  - STAPHYLOCOCCAL INFECTION [None]
  - LUNG DISORDER [None]
  - PLEURAL FIBROSIS [None]
